FAERS Safety Report 9165827 (Version 1)
Quarter: 2013Q1

REPORT INFORMATION
  Report Type: Spontaneous
  Country: US (occurrence: None)
  Receive Date: 20130314
  Receipt Date: 20130314
  Transmission Date: 20140127
  Serious: Yes (Other)
  Sender: FDA-Public Use
  Company Number: None

PATIENT
  Age: 62 Year
  Sex: Male
  Weight: 119.3 kg

DRUGS (1)
  1. ERYTHROMYCIN [Suspect]
     Indication: INFECTED DERMAL CYST
     Route: 048
     Dates: start: 20121019, end: 20121021

REACTIONS (2)
  - Rash pruritic [None]
  - Skin mass [None]
